FAERS Safety Report 7262356-4 (Version None)
Quarter: 2011Q1

REPORT INFORMATION
  Report Type: 
  Country: None (occurrence: None)
  Receive Date: 20110119
  Receipt Date: 20110110
  Transmission Date: 20110831
  Serious: Yes (Other)
  Sender: FDA-Public Use
  Company Number: JPI-P-013445

PATIENT
  Age: 54 Year
  Sex: Female
  Weight: 52.1637 kg

DRUGS (8)
  1. FLUTICASONE PROPIONATE [Concomitant]
  2. XYREM [Suspect]
     Indication: NARCOLEPSY
     Dosage: (2 IN 1 D), ORAL, 9 GM (4.5 GM, 2 IN 1 D), ORAL
     Route: 048
     Dates: start: 20091229
  3. ARMODAFINIL [Concomitant]
  4. LORATADINE [Concomitant]
  5. FLUOXETINE HYDROCHLORIDE [Concomitant]
  6. OMERPRAZOLE [Concomitant]
  7. SYNTHROID [Concomitant]
  8. VITAMINS NOS [Concomitant]

REACTIONS (1)
  - MYASTHENIA GRAVIS [None]
